FAERS Safety Report 9055813 (Version 1)
Quarter: 2013Q1

REPORT INFORMATION
  Report Type: Spontaneous
  Country: US (occurrence: US)
  Receive Date: 20130206
  Receipt Date: 20130206
  Transmission Date: 20140127
  Serious: Yes (Death)
  Sender: FDA-Public Use
  Company Number: CHPA2013US002323

PATIENT
  Age: 27 Year
  Sex: Male

DRUGS (3)
  1. DIPHENHYDRAMINE [Suspect]
     Dosage: UNK, UNK
  2. FENTANYL [Suspect]
     Dosage: UNK, UNK
  3. PROPOXYPHENE [Suspect]
     Dosage: UNK, UNK

REACTIONS (1)
  - Drug abuse [Fatal]
